FAERS Safety Report 20156668 (Version 2)
Quarter: 2021Q4

REPORT INFORMATION
  Report Type: Spontaneous
  Country: PT (occurrence: PT)
  Receive Date: 20211207
  Receipt Date: 20211221
  Transmission Date: 20220303
  Serious: Yes (Hospitalization)
  Sender: FDA-Public Use
  Company Number: PT-BAYER-2021A256749

PATIENT
  Age: 55 Year
  Sex: Male

DRUGS (1)
  1. SORAFENIB [Suspect]
     Active Substance: SORAFENIB
     Indication: Hepatocellular carcinoma

REACTIONS (3)
  - Cardiotoxicity [Recovered/Resolved]
  - Hypertension [Recovered/Resolved]
  - Arteriospasm coronary [Recovered/Resolved]
